FAERS Safety Report 13663118 (Version 3)
Quarter: 2019Q1

REPORT INFORMATION
  Report Type: Spontaneous
  Country: JP (occurrence: JP)
  Receive Date: 20170619
  Receipt Date: 20190211
  Transmission Date: 20190417
  Serious: Yes (Hospitalization)
  Sender: FDA-Public Use
  Company Number: JP-009507513-1706JPN001287J

PATIENT
  Age: 53 Year
  Sex: Male
  Weight: 81 kg

DRUGS (17)
  1. AZOSEMIDE [Suspect]
     Active Substance: AZOSEMIDE
     Indication: NEPHROTIC SYNDROME
     Dosage: 1 DOSAGE FORM, QD
     Route: 048
     Dates: start: 20170602
  2. CRESTOR [Concomitant]
     Active Substance: ROSUVASTATIN CALCIUM
     Dosage: 1 DOSAGE FORM, QD
     Route: 048
  3. AMLODIPINE [Concomitant]
     Active Substance: AMLODIPINE BESYLATE
     Dosage: 1 DOSAGE FORM, QD
     Route: 048
  4. SHINLUCK [Concomitant]
     Active Substance: SODIUM PICOSULFATE
     Dosage: 10 GTT DROPS, PRN
     Route: 048
  5. ERELSA TABLETS 50MG [Suspect]
     Active Substance: ELBASVIR
     Indication: HEPATITIS C RNA POSITIVE
     Dosage: 50 MG, QD
     Route: 048
     Dates: start: 20170407
  6. AMITIZA [Concomitant]
     Active Substance: LUBIPROSTONE
     Dosage: 1 DOSAGE FORM, QD
     Route: 048
  7. FUROSEMIDE. [Suspect]
     Active Substance: FUROSEMIDE
     Indication: NEPHROTIC SYNDROME
     Dosage: 2 DOSAGE FORM, QD
     Route: 048
     Dates: start: 201702
  8. URSODEOXYCHOLIC ACID [Concomitant]
     Active Substance: URSODIOL
     Dosage: 2 DOSAGE FORM, TID
     Route: 048
  9. GRAZYNA TABLETS 50MG [Suspect]
     Active Substance: GRAZOPREVIR
     Indication: HEPATITIS C RNA POSITIVE
     Dosage: 100 MG, QD
     Route: 048
     Dates: start: 20170407
  10. RABEPRAZOLE NA [Concomitant]
     Active Substance: RABEPRAZOLE SODIUM
     Dosage: 1 DOSAGE FORM, QD
     Route: 048
  11. PURSENNID [Concomitant]
     Active Substance: SENNOSIDES A AND B
     Dosage: 2 DOSAGE FORM, QD
     Route: 048
  12. LANTUS [Concomitant]
     Active Substance: INSULIN GLARGINE
     Dosage: UNK, QD
     Route: 042
  13. SPIRONOLACTONE. [Suspect]
     Active Substance: SPIRONOLACTONE
     Dosage: 1 DOSAGE FORM, QD
     Route: 048
  14. HUMALOG [Concomitant]
     Active Substance: INSULIN LISPRO
     Dosage: UNK, TID
     Route: 058
  15. FEBURIC [Concomitant]
     Active Substance: FEBUXOSTAT
     Dosage: 3 DOSAGE FORM, QD
     Route: 048
  16. FLUITRAN [Suspect]
     Active Substance: TRICHLORMETHIAZIDE
     Indication: NEPHROTIC SYNDROME
     Dosage: 1 DOSAGE FORM, QD
     Route: 048
     Dates: start: 201702
  17. LYRICA [Concomitant]
     Active Substance: PREGABALIN
     Dosage: 1 DOSAGE FORM, BID
     Route: 048

REACTIONS (1)
  - Hyponatraemia [Recovered/Resolved]

NARRATIVE: CASE EVENT DATE: 20170613
